FAERS Safety Report 7525841-3 (Version None)
Quarter: 2011Q2

REPORT INFORMATION
  Report Type: 
  Country: None (occurrence: None)
  Receive Date: 20110606
  Receipt Date: 20110520
  Transmission Date: 20111010
  Serious: Yes (Hospitalization)
  Sender: FDA-Public Use
  Company Number: A0790438A

PATIENT
  Age: 63 Year
  Sex: Female
  Weight: 95.5 kg

DRUGS (1)
  1. AVANDIA [Suspect]
     Indication: DIABETES MELLITUS
     Dosage: 8MG PER DAY
     Route: 048
     Dates: start: 20050101, end: 20050625

REACTIONS (5)
  - CEREBROVASCULAR ACCIDENT [None]
  - MEMORY IMPAIRMENT [None]
  - OEDEMA PERIPHERAL [None]
  - CHEST PAIN [None]
  - CORONARY ARTERY DISEASE [None]
